FAERS Safety Report 8582223-3 (Version None)
Quarter: 2012Q3

REPORT INFORMATION
  Report Type: 
  Country: None (occurrence: None)
  Receive Date: 20120809
  Receipt Date: 20120730
  Transmission Date: 20120928
  Serious: Yes (Hospitalization)
  Sender: FDA-Public Use
  Company Number: US-ELI_LILLY_AND_COMPANY-US201204009253

PATIENT
  Sex: Male

DRUGS (9)
  1. FORTEO [Suspect]
     Dosage: 20 UG, QD
  2. RANITIDINE [Concomitant]
     Dosage: UNK, TID
  3. WARFARIN SODIUM [Concomitant]
  4. FORTEO [Suspect]
     Indication: OSTEOPOROSIS
     Dosage: 20 UG, QD
     Dates: start: 20120308
  5. HYDROCODONE BITARTRATE [Concomitant]
  6. FORTEO [Suspect]
     Dosage: 20 UG, QD
     Route: 058
  7. MULTAQ [Concomitant]
  8. DILTIAZEM [Concomitant]
     Dosage: 180 MG, UNK
  9. FUROSEMIDE [Concomitant]

REACTIONS (5)
  - BACK PAIN [None]
  - RASH [None]
  - COMPRESSION FRACTURE [None]
  - PRURITUS [None]
  - DERMATITIS [None]
